FAERS Safety Report 15145053 (Version 6)
Quarter: 2018Q4

REPORT INFORMATION
  Report Type: Report from Study
  Country: US (occurrence: US)
  Receive Date: 20180713
  Receipt Date: 20181101
  Transmission Date: 20190204
  Serious: Yes (Hospitalization)
  Sender: FDA-Public Use
  Company Number: US-ACTELION-A-US2018-175245

PATIENT
  Age: 46 Year
  Sex: Male
  Weight: 83.45 kg

DRUGS (5)
  1. SILDENAFIL CITRATE. [Concomitant]
     Active Substance: SILDENAFIL CITRATE
  2. OPSUMIT [Suspect]
     Active Substance: MACITENTAN
     Indication: PULMONARY ARTERIAL HYPERTENSION
     Dosage: 10 MG, QD
     Route: 048
  3. VELETRI [Suspect]
     Active Substance: EPOPROSTENOL
     Indication: PULMONARY ARTERIAL HYPERTENSION
     Dosage: 12 NG/KG, PER MIN
     Route: 042
  4. VELETRI [Suspect]
     Active Substance: EPOPROSTENOL
     Dosage: 8 NG/KG, PER MIN
     Route: 042
  5. ORENITRAM [Concomitant]
     Active Substance: TREPROSTINIL

REACTIONS (11)
  - Gastrointestinal disorder [Unknown]
  - Flushing [Unknown]
  - Joint injury [Recovered/Resolved]
  - Catheter site pain [Unknown]
  - Fall [Recovered/Resolved]
  - Memory impairment [Recovered/Resolved]
  - Headache [Unknown]
  - Catheter site inflammation [Unknown]
  - Catheter site pruritus [Unknown]
  - Abdominal pain [Unknown]
  - Diarrhoea [Unknown]
